FAERS Safety Report 6336169-1 (Version None)
Quarter: 2009Q3

REPORT INFORMATION
  Report Type: 
  Country: None (occurrence: None)
  Receive Date: 20090901
  Receipt Date: 20090826
  Transmission Date: 20100115
  Serious: No
  Sender: FDA-Public Use
  Company Number: US-B.I. PHARMACEUTICALS,INC./RIDGEFIELD-2009-BP-10124BP

PATIENT
  Sex: Female

DRUGS (10)
  1. SPIRIVA [Suspect]
     Dosage: 18 MCG
     Route: 055
     Dates: start: 20090819, end: 20090823
  2. CARDIZEM CD [Concomitant]
     Indication: TACHYCARDIA
     Dosage: 180 MG
     Route: 048
     Dates: start: 19890101
  3. SECTRAL [Concomitant]
     Indication: TACHYCARDIA
     Dosage: 400 MG
     Route: 048
     Dates: start: 19890101
  4. LASIX [Concomitant]
     Indication: OEDEMA PERIPHERAL
     Dosage: 40 MG
     Route: 048
     Dates: start: 20070101
  5. LIBRAX [Concomitant]
     Indication: INTESTINAL FUNCTIONAL DISORDER
     Dosage: 5 MG
     Route: 048
     Dates: start: 19890101
  6. REGLAN [Concomitant]
     Indication: GASTROOESOPHAGEAL REFLUX DISEASE
     Dosage: 15 MG
     Route: 048
     Dates: start: 19990101
  7. PLAQUENIL [Concomitant]
     Indication: OSTEOARTHRITIS
     Dosage: 200 MG
     Route: 048
     Dates: start: 19950101
  8. PROAIR HFA [Concomitant]
     Indication: DYSPNOEA
     Route: 055
  9. ACTONEL [Concomitant]
     Indication: DYSPNOEA
     Route: 055
  10. ALBUTEROL [Concomitant]
     Indication: DYSPNOEA
     Route: 055

REACTIONS (4)
  - DIZZINESS [None]
  - DYSPNOEA [None]
  - MYALGIA [None]
  - VISION BLURRED [None]
